FAERS Safety Report 5192906-3 (Version None)
Quarter: 2006Q4

REPORT INFORMATION
  Report Type: 
  Country: None (occurrence: None)
  Receive Date: 20061228
  Receipt Date: 20060213
  Transmission Date: 20070319
  Serious: No
  Sender: FDA-Public Use
  Company Number: US-GLAXOSMITHKLINE-A0593456A

PATIENT
  Age: 47 Year
  Sex: Male

DRUGS (4)
  1. FLONASE [Suspect]
     Dosage: 2PUFF TWICE PER DAY
     Route: 045
     Dates: start: 20050601, end: 20050701
  2. ZYRTEC [Concomitant]
  3. NEXIUM [Concomitant]
  4. NORVASC [Concomitant]

REACTIONS (2)
  - PROTEIN TOTAL INCREASED [None]
  - RENAL DISORDER [None]
